FAERS Safety Report 9743209 (Version 2)
Quarter: 2015Q3

REPORT INFORMATION
  Report Type: Spontaneous
  Country: US (occurrence: US)
  Receive Date: 20131210
  Receipt Date: 20150804
  Transmission Date: 20151125
  Serious: No
  Sender: FDA-Public Use
  Company Number: US-GILEAD-2009-0025038

PATIENT
  Age: 45 Year
  Sex: Female
  Weight: 86.18 kg

DRUGS (5)
  1. COUMADIN [Concomitant]
     Active Substance: WARFARIN SODIUM
  2. VENTOLIN [Concomitant]
     Active Substance: ALBUTEROL SULFATE
  3. REVATIO [Concomitant]
     Active Substance: SILDENAFIL CITRATE
  4. LETAIRIS [Suspect]
     Active Substance: AMBRISENTAN
     Indication: PULMONARY ARTERIAL HYPERTENSION
     Route: 048
     Dates: start: 20090803
  5. VENTAVIS [Concomitant]
     Active Substance: ILOPROST

REACTIONS (1)
  - Nasal congestion [Unknown]
